FAERS Safety Report 20875512 (Version 1)
Quarter: 2022Q2

REPORT INFORMATION
  Report Type: Spontaneous
  Country: US (occurrence: US)
  Receive Date: 20220526
  Receipt Date: 20220526
  Transmission Date: 20220721
  Serious: No
  Sender: FDA-Public Use
  Company Number: US-BRISTOL-MYERS SQUIBB COMPANY-2022-030857

PATIENT
  Age: 75 Year
  Sex: Female

DRUGS (11)
  1. POMALYST [Suspect]
     Active Substance: POMALIDOMIDE
     Indication: Plasma cell myeloma
     Dosage: TAKE ONE CAPSULE (2 MG TOTAL) BY MOUTH DAILY ON DAYS 1 THRU 14 OF 28 DAY CYCLE
     Route: 048
     Dates: start: 20200129
  2. ACYCLOVIR CAP 200MG [Concomitant]
     Indication: Product used for unknown indication
  3. ASPIRIN CHW 81MG [Concomitant]
     Indication: Product used for unknown indication
  4. CALCIUM 500 TAB +D [Concomitant]
     Indication: Product used for unknown indication
  5. DAPSONE [Concomitant]
     Active Substance: DAPSONE
     Indication: Product used for unknown indication
  6. DULOXETINE CAP 20MG [Concomitant]
     Indication: Product used for unknown indication
  7. GABAPENTIN CAP 100MG [Concomitant]
     Indication: Product used for unknown indication
  8. INSULIN LISP INJ 100/ML [Concomitant]
     Indication: Product used for unknown indication
  9. KLOR-CON M20 TAB 20MEQ ER [Concomitant]
     Indication: Product used for unknown indication
  10. MORPHINE SUL TAB 15MG ER [Concomitant]
     Indication: Product used for unknown indication
  11. ZOFRAN TAB 8MG [Concomitant]
     Indication: Product used for unknown indication

REACTIONS (1)
  - Influenza [Unknown]
